FAERS Safety Report 9337468 (Version 1)
Quarter: 2013Q2

REPORT INFORMATION
  Report Type: Spontaneous
  Country: IL (occurrence: IL)
  Receive Date: 20130607
  Receipt Date: 20130607
  Transmission Date: 20140414
  Serious: Yes (Other)
  Sender: FDA-Public Use
  Company Number: IL-ELI_LILLY_AND_COMPANY-IL201306000265

PATIENT
  Age: 67 Year
  Sex: Female

DRUGS (7)
  1. FORTEO [Suspect]
     Indication: OSTEOPOROSIS
     Dosage: 20 UG, QD
     Route: 058
     Dates: start: 20130422
  2. LORIVAN [Concomitant]
     Dosage: UNK, EACH EVENING
  3. ATORVASTATIN CALCIUM [Concomitant]
  4. VASODIP [Concomitant]
  5. CILAZAPRIL MONOHYDRATE W/HYDROCHLOROTHIAZIDE [Concomitant]
  6. CALCIUM + VITAMIN D [Concomitant]
  7. NORMITEN [Concomitant]

REACTIONS (1)
  - Haematochezia [Not Recovered/Not Resolved]
